FAERS Safety Report 17641834 (Version 1)
Quarter: 2020Q2

REPORT INFORMATION
  Report Type: Spontaneous
  Country: US (occurrence: US)
  Receive Date: 20200408
  Receipt Date: 20200408
  Transmission Date: 20200713
  Serious: Yes (Hospitalization, Other)
  Sender: FDA-Public Use
  Company Number: US-ROCHE-2574255

PATIENT
  Age: 55 Year
  Sex: Female
  Weight: 83.99 kg

DRUGS (3)
  1. BACLOFEN. [Concomitant]
     Active Substance: BACLOFEN
     Indication: MUSCLE SPASTICITY
     Route: 065
     Dates: start: 2017, end: 20200120
  2. BACLOFEN. [Concomitant]
     Active Substance: BACLOFEN
     Route: 065
     Dates: start: 20200120
  3. OCREVUS [Suspect]
     Active Substance: OCRELIZUMAB
     Indication: RELAPSING-REMITTING MULTIPLE SCLEROSIS
     Route: 042
     Dates: start: 201810

REACTIONS (8)
  - Stress [Unknown]
  - Fall [Unknown]
  - Arthropathy [Unknown]
  - Urinary tract infection [Recovered/Resolved]
  - Muscle spasticity [Unknown]
  - Multiple sclerosis relapse [Recovering/Resolving]
  - Influenza A virus test positive [Recovered/Resolved]
  - Dizziness [Recovered/Resolved]

NARRATIVE: CASE EVENT DATE: 201911
